FAERS Safety Report 8138763-4 (Version None)
Quarter: 2012Q1

REPORT INFORMATION
  Report Type: 
  Country: None (occurrence: None)
  Receive Date: 20120215
  Receipt Date: 20120210
  Transmission Date: 20120608
  Serious: Yes (Hospitalization)
  Sender: FDA-Public Use
  Company Number: JP-GLAXOSMITHKLINE-B0779107A

PATIENT
  Sex: Male

DRUGS (4)
  1. TAMIFLU [Concomitant]
     Indication: INFLUENZA
     Route: 065
     Dates: start: 20120101
  2. LOXONIN [Concomitant]
     Indication: ANTIPYRESIS
     Dosage: 60MG PER DAY
     Route: 048
     Dates: start: 20120121, end: 20120125
  3. ACETAMINOPHEN [Concomitant]
     Route: 065
  4. RELENZA [Suspect]
     Indication: INFLUENZA
     Dosage: 20MG PER DAY
     Route: 055
     Dates: start: 20120121, end: 20120125

REACTIONS (4)
  - UNRESPONSIVE TO STIMULI [None]
  - SOMNOLENCE [None]
  - MALAISE [None]
  - MENINGITIS [None]
